FAERS Safety Report 9461855 (Version 2)
Quarter: 2014Q1

REPORT INFORMATION
  Report Type: Report from Study
  Country: DE (occurrence: DE)
  Receive Date: 20130816
  Receipt Date: 20140114
  Transmission Date: 20141002
  Serious: Yes (Other)
  Sender: FDA-Public Use
  Company Number: DE-SANOFI-AVENTIS-2013SA081801

PATIENT
  Age: 64 Year
  Sex: Male

DRUGS (13)
  1. JEVTANA [Suspect]
     Indication: HORMONE-REFRACTORY PROSTATE CANCER
     Route: 051
     Dates: start: 20130430, end: 20130430
  2. JEVTANA [Suspect]
     Indication: HORMONE-REFRACTORY PROSTATE CANCER
     Route: 051
     Dates: start: 20130521, end: 20130521
  3. ANALGESICS [Concomitant]
     Indication: PAIN
  4. RED BLOOD CELLS, CONCENTRATED [Concomitant]
     Indication: THROMBOCYTOPENIA
  5. NEULASTA [Concomitant]
  6. KEVATRIL [Concomitant]
  7. VERGENTAN [Concomitant]
  8. TAVEGIL [Concomitant]
  9. RANITIDINE [Concomitant]
  10. METOCLOPRAMIDE [Concomitant]
  11. DEXAMETHASONE [Concomitant]
  12. OMEPRAZOLE [Concomitant]
  13. PREDNISOLONE [Concomitant]

REACTIONS (1)
  - Paraplegia [Not Recovered/Not Resolved]
